FAERS Safety Report 4977792-6 (Version None)
Quarter: 2006Q1

REPORT INFORMATION
  Report Type: 
  Country: None (occurrence: None)
  Receive Date: 20060215
  Receipt Date: 20050310
  Transmission Date: 20060701
  Serious: No
  Sender: FDA-Public Use
  Company Number: MC200500261

PATIENT
  Sex: 0

DRUGS (2)
  1. ANGIOMAX [Suspect]
     Dosage: SEE IMAGE
     Route: 040
     Dates: start: 20050309, end: 20050309
  2. PLAVIX [Concomitant]

REACTIONS (1)
  - STENT OCCLUSION [None]
